FAERS Safety Report 14715439 (Version 2)
Quarter: 2018Q2

REPORT INFORMATION
  Report Type: Report from Study
  Country: TR (occurrence: TR)
  Receive Date: 20180404
  Receipt Date: 20180420
  Transmission Date: 20180711
  Serious: Yes (Life-Threatening, Hospitalization, Other)
  Sender: FDA-Public Use
  Company Number: TR-CELGENEUS-TUR-20180309706

PATIENT
  Age: 73 Year
  Sex: Male
  Weight: 85 kg

DRUGS (7)
  1. AVIL [Concomitant]
     Active Substance: PHENIRAMINE
     Indication: ALLERGY PROPHYLAXIS
     Route: 041
     Dates: start: 20180228
  2. I.N.H [Concomitant]
     Indication: ANTIBIOTIC PROPHYLAXIS
     Dosage: 300 MILLIGRAM
     Route: 048
     Dates: start: 20180407
  3. VENETOCLAX. [Concomitant]
     Active Substance: VENETOCLAX
     Indication: ACUTE MYELOID LEUKAEMIA
     Route: 065
  4. AZACITIDINE. [Suspect]
     Active Substance: AZACITIDINE
     Indication: ACUTE MYELOID LEUKAEMIA
     Dosage: 75 MILLIGRAM/SQ. METER
     Route: 058
     Dates: start: 20180221, end: 20180227
  5. DROPIA MET [Concomitant]
     Indication: DIABETES MELLITUS
     Dosage: 865 MILLIGRAM
     Route: 048
     Dates: start: 2004
  6. CORASPIN [Concomitant]
     Active Substance: ASPIRIN
     Indication: UNEVALUABLE EVENT
     Dosage: 100 MILLIGRAM
     Route: 048
     Dates: start: 2017
  7. AERIUS [Concomitant]
     Active Substance: DESLORATADINE
     Indication: RASH
     Dosage: 5 MILLIGRAM
     Route: 048
     Dates: start: 20180125

REACTIONS (4)
  - Pyrexia [Not Recovered/Not Resolved]
  - General physical health deterioration [Not Recovered/Not Resolved]
  - Pneumonia fungal [Not Recovered/Not Resolved]
  - Rash [Not Recovered/Not Resolved]

NARRATIVE: CASE EVENT DATE: 20180302
